FAERS Safety Report 9582801 (Version 1)
Quarter: 2013Q4

REPORT INFORMATION
  Report Type: Spontaneous
  Country: US (occurrence: US)
  Receive Date: 20131002
  Receipt Date: 20131002
  Transmission Date: 20140711
  Serious: No
  Sender: FDA-Public Use
  Company Number: US-AMGEN-USASP2013043177

PATIENT
  Age: 49 Year
  Sex: Male
  Weight: 104.31 kg

DRUGS (4)
  1. ENBREL [Suspect]
     Indication: PRODUCT USED FOR UNKNOWN INDICATION
     Dosage: 50 MG, QWK
     Route: 058
  2. PREDNISONE [Concomitant]
     Dosage: 1 MG, UNK
  3. NAPROXEN [Concomitant]
     Dosage: 250 MG, UNK
  4. VITAMIN B COMPLEX [Concomitant]
     Dosage: UNK

REACTIONS (2)
  - Nodule [Unknown]
  - Mass [Unknown]
